FAERS Safety Report 25222064 (Version 1)
Quarter: 2025Q2

REPORT INFORMATION
  Report Type: Spontaneous
  Country: GB (occurrence: GB)
  Receive Date: 20250421
  Receipt Date: 20250421
  Transmission Date: 20250716
  Serious: Yes (Other)
  Sender: PFIZER
  Company Number: GB-VIIV HEALTHCARE-GB2025EME041804

PATIENT
  Sex: Male

DRUGS (3)
  1. PAXLOVID [Suspect]
     Active Substance: NIRMATRELVIR\RITONAVIR
     Indication: COVID-19 treatment
  2. TIVICAY [Suspect]
     Active Substance: DOLUTEGRAVIR SODIUM
  3. DARUNAVIR [Suspect]
     Active Substance: DARUNAVIR

REACTIONS (3)
  - Blindness [Unknown]
  - Treatment noncompliance [Unknown]
  - Incorrect dose administered [Unknown]
